FAERS Safety Report 7095450-1 (Version None)
Quarter: 2010Q4

REPORT INFORMATION
  Report Type: 
  Country: None (occurrence: None)
  Receive Date: 20101111
  Receipt Date: 20101102
  Transmission Date: 20110411
  Serious: Yes (Other)
  Sender: FDA-Public Use
  Company Number: CA-JNJFOC-20101101433

PATIENT
  Sex: Female
  Weight: 74 kg

DRUGS (9)
  1. REMICADE [Suspect]
     Indication: PSORIASIS
     Route: 042
  2. METHOTREXATE [Concomitant]
  3. LIPITOR [Concomitant]
     Dosage: 1/2 20 MG/DAY
  4. NOVO-HYDRAZIDE [Concomitant]
  5. SANDOZ BISOPROLOL [Concomitant]
     Dosage: 1/2 TAB/DAY
  6. RAMIPRIL-RATIOPHARM [Concomitant]
  7. APO-FOLIC [Concomitant]
  8. NOVO-HYDROXYZIN [Concomitant]
  9. SORIATANE [Concomitant]

REACTIONS (2)
  - NASOPHARYNGITIS [None]
  - OVARIAN CYST [None]
